FAERS Safety Report 6396357-5 (Version None)
Quarter: 2009Q4

REPORT INFORMATION
  Report Type: 
  Country: None (occurrence: None)
  Receive Date: 20091012
  Receipt Date: 20090929
  Transmission Date: 20100525
  Serious: Yes (Other)
  Sender: FDA-Public Use
  Company Number: PHHY2009DE34087

PATIENT
  Sex: Female
  Weight: 75 kg

DRUGS (4)
  1. CGS 20267 T30748+ [Suspect]
     Indication: BREAST CANCER
     Dosage: 2.5 MG DAILY
     Route: 048
     Dates: start: 20090215, end: 20090512
  2. CALCIUM [Concomitant]
     Dosage: UNK
     Route: 065
     Dates: start: 20090216
  3. MAGNESIUM [Concomitant]
     Dosage: UNK
     Route: 065
     Dates: start: 20090216
  4. RADIOTHERAPY [Concomitant]
     Dosage: UNK
     Route: 065
     Dates: start: 20090405

REACTIONS (4)
  - ARTHRALGIA [None]
  - GENERAL PHYSICAL HEALTH DETERIORATION [None]
  - VISUAL IMPAIRMENT [None]
  - VOMITING [None]
